FAERS Safety Report 4803783-1 (Version None)
Quarter: 2005Q4

REPORT INFORMATION
  Report Type: 
  Country: None (occurrence: None)
  Receive Date: 20051019
  Receipt Date: 20050908
  Transmission Date: 20060501
  Serious: Yes (Hospitalization, Disabling, Other)
  Sender: FDA-Public Use
  Company Number: US-MERCK-0509USA01202

PATIENT
  Age: 53 Year
  Sex: Female
  Weight: 86 kg

DRUGS (8)
  1. VIOXX [Suspect]
     Indication: ARTHRITIS
     Route: 048
     Dates: start: 20000113, end: 20000601
  2. VALIUM [Concomitant]
     Route: 065
  3. PROZAC [Concomitant]
     Route: 065
  4. GLUCOPHAGE [Concomitant]
     Route: 065
  5. TOPROL-XL [Concomitant]
     Route: 065
  6. ACTOS [Concomitant]
     Route: 065
  7. GLYBURIDE [Concomitant]
     Route: 065
  8. RISPERDAL [Concomitant]
     Route: 065

REACTIONS (10)
  - ACUTE PULMONARY OEDEMA [None]
  - CARDIAC FAILURE CONGESTIVE [None]
  - CARDIOMYOPATHY [None]
  - CHEST PAIN [None]
  - DEPRESSION [None]
  - GASTROOESOPHAGEAL REFLUX DISEASE [None]
  - HYPERTENSIVE CRISIS [None]
  - INTERVERTEBRAL DISC DEGENERATION [None]
  - MYOCARDIAL INFARCTION [None]
  - ROAD TRAFFIC ACCIDENT [None]
